FAERS Safety Report 5521664-5 (Version None)
Quarter: 2007Q4

REPORT INFORMATION
  Report Type: 
  Country: None (occurrence: None)
  Receive Date: 20071120
  Receipt Date: 20071112
  Transmission Date: 20080405
  Serious: Yes (Other)
  Sender: FDA-Public Use
  Company Number: PHEH2007US11664

PATIENT
  Sex: Female

DRUGS (2)
  1. FORADIL [Suspect]
     Dosage: UNK, UNK
     Dates: start: 20070401
  2. SPIRIVA [Suspect]

REACTIONS (6)
  - COLITIS [None]
  - COLONOSCOPY ABNORMAL [None]
  - DRUG INTERACTION [None]
  - OESOPHAGEAL PAIN [None]
  - REFLUX OESOPHAGITIS [None]
  - STOMACH DISCOMFORT [None]
